FAERS Safety Report 10871907 (Version 2)
Quarter: 2015Q1

REPORT INFORMATION
  Report Type: Spontaneous
  Country: FR (occurrence: FR)
  Receive Date: 20150226
  Receipt Date: 20150305
  Transmission Date: 20150721
  Serious: Yes (Hospitalization)
  Sender: FDA-Public Use
  Company Number: FR-PFIZER INC-2015067186

PATIENT
  Age: 61 Year
  Sex: Female
  Weight: 75 kg

DRUGS (19)
  1. LYRICA [Suspect]
     Active Substance: PREGABALIN
     Dosage: 100 MG, 2X/DAY
     Route: 048
     Dates: end: 201501
  2. LEVEMIR [Suspect]
     Active Substance: INSULIN DETEMIR
     Dosage: 20 IU IN THE MORNING AND 24 IU IN THE EVENING
     Route: 058
     Dates: end: 201501
  3. DUOPLAVIN [Concomitant]
     Active Substance: ASPIRIN\CLOPIDOGREL
     Dosage: 1 DF OF 75 MG/75 MG, 1X/DAY
     Route: 048
  4. FELODIPINE. [Concomitant]
     Active Substance: FELODIPINE
     Dosage: 5 MG, 1X/DAY
     Route: 048
  5. FUROSEMIDE ARROW [Suspect]
     Active Substance: FUROSEMIDE
     Dosage: 40 MG, 1X/DAY
     Route: 048
  6. NICORANDIL BIOGARAN [Suspect]
     Active Substance: NICORANDIL
     Dosage: 20 MG, 2X/DAY
     Route: 048
  7. VICTOZA [Suspect]
     Active Substance: LIRAGLUTIDE
     Dosage: 1.2 MG, DAILY
     Route: 058
     Dates: end: 201501
  8. LAMALINE [Suspect]
     Active Substance: ACETAMINOPHEN\CAFFEINE\OPIUM
     Dosage: 2 DF, 3X/DAY
     Route: 048
     Dates: start: 20150107
  9. BISOPROLOL [Concomitant]
     Active Substance: BISOPROLOL
     Dosage: 10 MG, 1X/DAY
     Route: 048
  10. MIOREL [Suspect]
     Active Substance: ORPHENADRINE
     Indication: BACK PAIN
     Dosage: 2 DF OF 4 MG, 2X/DAY
     Route: 048
     Dates: start: 20150107, end: 20150113
  11. ATORVASTATINE ARROW [Suspect]
     Active Substance: ATORVASTATIN
     Dosage: 60 MG, 1X/DAY
     Route: 048
     Dates: end: 201501
  12. FLECTOR [Suspect]
     Active Substance: DICLOFENAC EPOLAMINE
     Dosage: 1 APPLICATION, 3X/DAY
     Route: 003
     Dates: start: 20150107
  13. ATORVASTATINE ARROW [Suspect]
     Active Substance: ATORVASTATIN
     Dosage: 40 MG, DAILY
     Route: 048
  14. METFORMINE BIOGARAN [Suspect]
     Active Substance: METFORMIN HYDROCHLORIDE
     Dosage: 1000 MG, 2X/DAY
     Route: 048
     Dates: end: 201501
  15. ATORVASTATINE ARROW [Suspect]
     Active Substance: ATORVASTATIN
     Dosage: 20 MG, DAILY
     Route: 048
  16. PROCORALAN [Concomitant]
     Active Substance: IVABRADINE
     Dosage: 5 MG, 2X/DAY
     Route: 048
  17. TRIATEC [Suspect]
     Active Substance: RAMIPRIL
     Dosage: 5 MG, 1X/DAY
     Route: 048
  18. ESOMEPRAZOLE ACTAVIS [Suspect]
     Active Substance: ESOMEPRAZOLE
     Dosage: 20 MG, DAILY
     Route: 048
     Dates: end: 201501
  19. GLICLAZIDE BIOGARAN [Suspect]
     Active Substance: GLICLAZIDE
     Dosage: 3 DF OF 30 MG, 1X/DAY
     Route: 048
     Dates: end: 201501

REACTIONS (10)
  - Polyuria [Unknown]
  - Hyponatraemia [Unknown]
  - Dehydration [Recovering/Resolving]
  - Polydipsia [Unknown]
  - Hyperkalaemia [Unknown]
  - Malaise [Unknown]
  - Acute kidney injury [Recovering/Resolving]
  - Diarrhoea [Recovering/Resolving]
  - Pruritus [Recovering/Resolving]
  - Skin reaction [Recovering/Resolving]

NARRATIVE: CASE EVENT DATE: 20150109
